FAERS Safety Report 23571223 (Version 1)
Quarter: 2024Q1

REPORT INFORMATION
  Report Type: Spontaneous
  Country: US (occurrence: None)
  Receive Date: 20240227
  Receipt Date: 20240227
  Transmission Date: 20240410
  Serious: Yes (Hospitalization)
  Sender: FDA-Public Use
  Company Number: None

PATIENT
  Age: 78 Year
  Sex: Female

DRUGS (11)
  1. PROLIA [Suspect]
     Active Substance: DENOSUMAB
     Indication: Osteoporosis
     Dosage: OTHER QUANTITY : 1 SYRINGE;?OTHER FREQUENCY : EVERY 6 MONTHS;?
     Route: 058
     Dates: start: 20190503
  2. AMITRIPTYLINE [Concomitant]
     Active Substance: AMITRIPTYLINE
  3. CELEBREX [Concomitant]
     Active Substance: CELECOXIB
  4. CLARITIN [Concomitant]
     Active Substance: LORATADINE
  5. GABAPENTIN [Concomitant]
  6. HYDROYCHLOR [Concomitant]
  7. IRON [Concomitant]
     Active Substance: IRON
  8. LORAZEPAM [Concomitant]
  9. METOPROL [Concomitant]
  10. MONTELUKAST SODIUM [Concomitant]
     Active Substance: MONTELUKAST SODIUM
  11. OXYOD/APAP [Concomitant]

REACTIONS (1)
  - Fall [None]

NARRATIVE: CASE EVENT DATE: 20240223
